FAERS Safety Report 6356977-0 (Version None)
Quarter: 2009Q3

REPORT INFORMATION
  Report Type: 
  Country: None (occurrence: None)
  Receive Date: 20090915
  Receipt Date: 20090908
  Transmission Date: 20100115
  Serious: Yes (Hospitalization, Other)
  Sender: FDA-Public Use
  Company Number: US-AMGEN-US352135

PATIENT
  Sex: Male
  Weight: 62.9 kg

DRUGS (15)
  1. NEULASTA [Suspect]
     Indication: CHEMOTHERAPY
     Route: 058
     Dates: start: 20090304, end: 20090424
  2. NEUPOGEN [Suspect]
     Indication: NEUTROPENIA
     Dates: start: 20090604
  3. RITUXAN [Suspect]
     Dates: start: 20090303, end: 20090708
  4. CYTOXAN [Suspect]
     Dates: start: 20090303, end: 20090708
  5. VINCRISTINE [Suspect]
     Dates: start: 20090303, end: 20090708
  6. ADRIAMYCIN PFS [Suspect]
     Dates: start: 20090303
  7. LISINOPRIL [Concomitant]
  8. METFORMIN HCL [Concomitant]
  9. HUMULIN R [Concomitant]
  10. SYNTHROID [Concomitant]
  11. PRANDIN [Concomitant]
  12. LEXAPRO [Concomitant]
  13. PROTONIX [Concomitant]
  14. LEVAQUIN [Concomitant]
  15. VALTREX [Concomitant]

REACTIONS (5)
  - DRUG INEFFECTIVE [None]
  - HAEMOGLOBIN DECREASED [None]
  - NEUTROPENIA [None]
  - PLATELET COUNT DECREASED [None]
  - PNEUMOPERITONEUM [None]
